FAERS Safety Report 18734182 (Version 2)
Quarter: 2021Q1

REPORT INFORMATION
  Report Type: Report from Study
  Country: CA (occurrence: CA)
  Receive Date: 20210113
  Receipt Date: 20210129
  Transmission Date: 20210419
  Serious: Yes (Death)
  Sender: FDA-Public Use
  Company Number: NVSC2021CA005166

PATIENT
  Age: 38 Year
  Sex: Male
  Weight: 63.2 kg

DRUGS (2)
  1. VOTRIENT [Suspect]
     Active Substance: PAZOPANIB HYDROCHLORIDE
     Dosage: 600 MG (MODULATED DOSE)
     Route: 048
     Dates: end: 2019
  2. VOTRIENT [Suspect]
     Active Substance: PAZOPANIB HYDROCHLORIDE
     Indication: NASOPHARYNGEAL CANCER METASTATIC
     Dosage: 800 MG (FULL DOSE)
     Route: 048
     Dates: start: 2019

REACTIONS (2)
  - Malignant neoplasm progression [Fatal]
  - Nasopharyngeal cancer metastatic [Fatal]

NARRATIVE: CASE EVENT DATE: 201912
